FAERS Safety Report 9185843 (Version 1)
Quarter: 2013Q1

REPORT INFORMATION
  Report Type: Spontaneous
  Country: US (occurrence: None)
  Receive Date: 20130321
  Receipt Date: 20130321
  Transmission Date: 20140127
  Serious: Yes (Other)
  Sender: FDA-Public Use
  Company Number: 1639917

PATIENT
  Sex: 0

DRUGS (6)
  1. DIGOXIN [Suspect]
     Indication: PRODUCT USED FOR UNKNOWN INDICATION
  2. DOBUTAMINE HYDROCHLORIDE [Suspect]
     Indication: PRODUCT USED FOR UNKNOWN INDICATION
     Route: 041
  3. METOPROLOL [Suspect]
     Indication: PRODUCT USED FOR UNKNOWN INDICATION
  4. FOSINOPRIL [Suspect]
     Indication: PRODUCT USED FOR UNKNOWN INDICATION
  5. OTHER BETA-LACTAM ANTIBACTERIAL [Suspect]
     Indication: PRODUCT USED FOR UNKNOWN INDICATION
  6. SPIRONOLACTON [Suspect]
     Indication: PRODUCT USED FOR UNKNOWN INDICATION

REACTIONS (5)
  - Arrhythmia [None]
  - Graft complication [None]
  - Angiopathy [None]
  - Allergic myocarditis [None]
  - Heart transplant [None]
